FAERS Safety Report 14897131 (Version 1)
Quarter: 2018Q2

REPORT INFORMATION
  Report Type: Spontaneous
  Country: US (occurrence: US)
  Receive Date: 20180426
  Receipt Date: 20180426
  Transmission Date: 20180711
  Serious: Yes (Hospitalization)
  Sender: FDA-Public Use
  Company Number: None

PATIENT
  Age: 67 Year
  Sex: Male
  Weight: 67.5 kg

DRUGS (1)
  1. WARFARIN [Suspect]
     Active Substance: WARFARIN
     Indication: DEEP VEIN THROMBOSIS
     Dates: start: 20170606, end: 20171215

REACTIONS (4)
  - Pyelonephritis [None]
  - International normalised ratio increased [None]
  - Haematuria [None]
  - Renal haemorrhage [None]

NARRATIVE: CASE EVENT DATE: 20171212
